FAERS Safety Report 4312788-9 (Version None)
Quarter: 2004Q1

REPORT INFORMATION
  Report Type: 
  Country: None (occurrence: None)
  Receive Date: 20040304
  Receipt Date: 20040223
  Transmission Date: 20041129
  Serious: Yes (Hospitalization)
  Sender: FDA-Public Use
  Company Number: 2004200946FR

PATIENT
  Age: 71 Year
  Sex: Female
  Weight: 98 kg

DRUGS (3)
  1. CELEBREX [Suspect]
     Dosage: 200 MG, DAILY, ORAL
     Route: 048
     Dates: end: 20040120
  2. ATORVASTATIN CALCIUM [Suspect]
     Dosage: 10 MG
  3. PREVISCAN (FLUINDIONE) [Suspect]
     Dosage: 20 MG, DAILY
     Dates: start: 20010115, end: 20040120

REACTIONS (3)
  - HEPATITIS [None]
  - OEDEMA PERIPHERAL [None]
  - PURPURA [None]
